FAERS Safety Report 11244146 (Version 1)
Quarter: 2015Q3

REPORT INFORMATION
  Report Type: Spontaneous
  Country: US (occurrence: None)
  Receive Date: 20150706
  Receipt Date: 20150706
  Transmission Date: 20151125
  Serious: No
  Sender: FDA-Public Use
  Company Number: None

PATIENT

DRUGS (2)
  1. FLUOROURACIL. [Suspect]
     Active Substance: FLUOROURACIL
  2. EASYPUMP ELASTOMERIC INFUSION PUMP [Suspect]
     Active Substance: DEVICE

REACTIONS (3)
  - Accidental overdose [None]
  - Drug administered in wrong device [None]
  - Product label issue [None]
